FAERS Safety Report 8406473-1 (Version None)
Quarter: 2012Q2

REPORT INFORMATION
  Report Type: 
  Country: None (occurrence: None)
  Receive Date: 20120604
  Receipt Date: 20120523
  Transmission Date: 20120825
  Serious: Yes (Other)
  Sender: FDA-Public Use
  Company Number: US-VERTEX PHARMACEUTICALS INC.-AE-2012-005887

PATIENT
  Sex: Male

DRUGS (19)
  1. OMEPRAZOLE [Concomitant]
     Indication: GASTROOESOPHAGEAL REFLUX DISEASE
     Dates: start: 20030101
  2. ENSURE [Concomitant]
     Indication: PANCREATIC INSUFFICIENCY
     Dates: start: 20111201
  3. CIPROFLOXACIN [Concomitant]
     Indication: INFECTIVE PULMONARY EXACERBATION OF CYSTIC FIBROSIS
     Dates: start: 20120305, end: 20120305
  4. ALBUTEROL [Concomitant]
     Indication: INFECTIVE PULMONARY EXACERBATION OF CYSTIC FIBROSIS
     Dates: start: 20110101
  5. VX-809 [Suspect]
     Indication: CYSTIC FIBROSIS
     Route: 048
     Dates: start: 20120229, end: 20120423
  6. KALYDECO [Suspect]
     Indication: CYSTIC FIBROSIS
     Route: 048
     Dates: start: 20120326, end: 20120423
  7. LEVAQUIN [Concomitant]
     Indication: INFECTIVE PULMONARY EXACERBATION OF CYSTIC FIBROSIS
     Dates: start: 20120309, end: 20120319
  8. GOLYTELY [Concomitant]
     Indication: CONSTIPATION
     Dates: start: 20000101
  9. MASS GAINER XXX [Concomitant]
     Indication: PANCREATIC INSUFFICIENCY
     Dates: start: 20110101
  10. BACTRIM DS [Concomitant]
     Indication: INFECTIVE PULMONARY EXACERBATION OF CYSTIC FIBROSIS
     Dates: start: 20120305, end: 20120318
  11. SODIUM CHLORIDE CONCENTRATED INJ [Concomitant]
     Indication: CYSTIC FIBROSIS LUNG
     Dates: start: 20080101
  12. PULMOZYME [Suspect]
     Indication: CYSTIC FIBROSIS LUNG
     Dates: start: 20080101
  13. SINGULAIR [Suspect]
     Indication: CYSTIC FIBROSIS LUNG
     Dates: start: 20020101, end: 20120209
  14. ACETAMINOPHEN [Concomitant]
     Indication: CYSTIC FIBROSIS LUNG
     Dates: start: 20110101, end: 20120229
  15. VITAMIN K TAB [Concomitant]
     Indication: INFECTIVE PULMONARY EXACERBATION OF CYSTIC FIBROSIS
     Dates: start: 20120306
  16. VITAMAX [Concomitant]
     Indication: PANCREATIC INSUFFICIENCY
     Dates: start: 19900101
  17. CREON [Concomitant]
     Indication: PANCREATIC INSUFFICIENCY
     Dates: start: 20100101
  18. ALBUTEROL [Concomitant]
     Indication: CYSTIC FIBROSIS LUNG
  19. ASPIRIN [Concomitant]
     Indication: INFECTIVE PULMONARY EXACERBATION OF CYSTIC FIBROSIS
     Dates: start: 20120301, end: 20120304

REACTIONS (2)
  - BLOOD CREATINE PHOSPHOKINASE INCREASED [None]
  - RHABDOMYOLYSIS [None]
